FAERS Safety Report 11571602 (Version 1)
Quarter: 2015Q3

REPORT INFORMATION
  Report Type: Spontaneous
  Country: US (occurrence: US)
  Receive Date: 20150929
  Receipt Date: 20150929
  Transmission Date: 20151125
  Serious: No
  Sender: FDA-Public Use
  Company Number: US-SA-2015SA108028

PATIENT
  Age: 42 Year
  Sex: Female

DRUGS (14)
  1. CELEXA [Concomitant]
     Active Substance: CITALOPRAM HYDROBROMIDE
     Dosage: 10 MG
  2. LASIX [Concomitant]
     Active Substance: FUROSEMIDE
     Dosage: 20 MG
  3. VITAMIN B12 [Concomitant]
     Active Substance: CYANOCOBALAMIN
  4. BIOTIN [Concomitant]
     Active Substance: BIOTIN
     Dosage: 2500 MC
  5. MODAFINIL. [Concomitant]
     Active Substance: MODAFINIL
     Dosage: 100 MG
  6. ZOLMITRIPTAN. [Concomitant]
     Active Substance: ZOLMITRIPTAN
     Dosage: 5 MG
  7. AUBAGIO [Suspect]
     Active Substance: TERIFLUNOMIDE
     Indication: MULTIPLE SCLEROSIS
     Route: 048
     Dates: start: 201502
  8. SPIRONOLACTONE. [Concomitant]
     Active Substance: SPIRONOLACTONE
     Dosage: 50 MG
  9. TOPIRAMATE. [Concomitant]
     Active Substance: TOPIRAMATE
     Dosage: 25 MG
  10. GABAPENTIN. [Concomitant]
     Active Substance: GABAPENTIN
     Dosage: 800 MG
  11. OXYMORPHONE [Concomitant]
     Active Substance: OXYMORPHONE
     Dosage: 10 MG
  12. AMITRIPTYLINE [Concomitant]
     Active Substance: AMITRIPTYLINE
     Dosage: 100 MG
  13. ATIVAN [Concomitant]
     Active Substance: LORAZEPAM
     Dosage: 0.5 MG
  14. POTASSIUM [Concomitant]
     Active Substance: POTASSIUM

REACTIONS (4)
  - Sciatic nerve injury [Unknown]
  - Arthralgia [Unknown]
  - Blister [Unknown]
  - Alopecia [Unknown]

NARRATIVE: CASE EVENT DATE: 2015
